FAERS Safety Report 26179945 (Version 2)
Quarter: 2025Q4

REPORT INFORMATION
  Report Type: Spontaneous
  Country: CH (occurrence: CH)
  Receive Date: 20251219
  Receipt Date: 20251223
  Transmission Date: 20260117
  Serious: No
  Sender: NOVARTIS
  Company Number: CH-002147023-NVSC2025CH192433

PATIENT
  Sex: Male

DRUGS (2)
  1. MEKINIST [Suspect]
     Active Substance: TRAMETINIB DIMETHYL SULFOXIDE
     Indication: Astrocytoma, low grade
     Dosage: UNK
     Route: 065
  2. MEKINIST [Suspect]
     Active Substance: TRAMETINIB DIMETHYL SULFOXIDE
     Dosage: 0.5 MG, QD
     Route: 065

REACTIONS (2)
  - Alopecia [Unknown]
  - Off label use [Unknown]
